FAERS Safety Report 6360965-8 (Version None)
Quarter: 2009Q3

REPORT INFORMATION
  Report Type: 
  Country: None (occurrence: None)
  Receive Date: 20090918
  Receipt Date: 20090916
  Transmission Date: 20100115
  Serious: Yes (Death, Hospitalization)
  Sender: FDA-Public Use
  Company Number: US-BRISTOL-MYERS SQUIBB COMPANY-14762223

PATIENT
  Age: 86 Year
  Sex: Female
  Weight: 54 kg

DRUGS (4)
  1. ERBITUX [Suspect]
     Indication: OESOPHAGEAL ADENOCARCINOMA
     Dosage: 400MG/M2/WEEK IV, WEEK 1 THEN 250MG/M2/WEEK, WEEKS 2-6
     Route: 042
     Dates: start: 20090803, end: 20090818
  2. CISPLATIN [Suspect]
     Indication: OESOPHAGEAL ADENOCARCINOMA
     Dosage: 25MG/ML/WEEK FOR 6 WEEKS
     Route: 042
     Dates: start: 20090803, end: 20090818
  3. TAXOL [Suspect]
     Indication: OESOPHAGEAL ADENOCARCINOMA
     Dosage: 50MG/M2/WEEK FOR 6 WEEKS
     Route: 042
     Dates: start: 20090803, end: 20090818
  4. RADIATION THERAPY [Suspect]
     Indication: OESOPHAGEAL ADENOCARCINOMA
     Dosage: EXT. BEAM, 3D;TOTAL DOSE=2340CGE; NO OF FRACTIONS-28; NO OF ELAPSED DAYS-13
     Dates: start: 20090819, end: 20090819

REACTIONS (2)
  - CEREBRAL ISCHAEMIA [None]
  - DEATH [None]
